FAERS Safety Report 6763249-9 (Version None)
Quarter: 2010Q2

REPORT INFORMATION
  Report Type: 
  Country: None (occurrence: None)
  Receive Date: 20100608
  Receipt Date: 20100608
  Transmission Date: 20101027
  Serious: Yes (Hospitalization)
  Sender: FDA-Public Use
  Company Number: None

PATIENT
  Age: 20 Year
  Sex: Female
  Weight: 58.9676 kg

DRUGS (1)
  1. SEPTRA DS [Suspect]
     Indication: STAPHYLOCOCCAL SKIN INFECTION
     Dosage: ONE TABLET TWICE DAILY PO
     Route: 048
     Dates: start: 20091003, end: 20091007

REACTIONS (2)
  - RASH [None]
  - SKIN REACTION [None]
